FAERS Safety Report 13407629 (Version 3)
Quarter: 2017Q2

REPORT INFORMATION
  Report Type: Spontaneous
  Country: NO (occurrence: NO)
  Receive Date: 20170406
  Receipt Date: 20170510
  Transmission Date: 20170830
  Serious: Yes (Hospitalization)
  Sender: FDA-Public Use
  Company Number: NO-ROCHE-1915948

PATIENT
  Sex: Female

DRUGS (8)
  1. MABTHERA [Suspect]
     Active Substance: RITUXIMAB
     Indication: PEMPHIGUS
     Route: 042
     Dates: start: 20161019
  2. NEXIUM [Concomitant]
     Active Substance: ESOMEPRAZOLE MAGNESIUM
  3. MABTHERA [Suspect]
     Active Substance: RITUXIMAB
     Route: 042
     Dates: start: 20160511
  4. ALENDRONAT [Concomitant]
     Active Substance: ALENDRONATE SODIUM
  5. CALCIGRAN FORTE [Concomitant]
  6. PREDNISOLON [Concomitant]
     Active Substance: PREDNISOLONE
  7. DIOVAN [Concomitant]
     Active Substance: VALSARTAN
  8. MABTHERA [Suspect]
     Active Substance: RITUXIMAB
     Route: 042
     Dates: start: 20160526

REACTIONS (6)
  - Troponin increased [Unknown]
  - Aphasia [Recovering/Resolving]
  - Cerebrovascular accident [Not Recovered/Not Resolved]
  - Off label use [Unknown]
  - Acute myocardial infarction [Unknown]
  - Ventricular hypokinesia [Unknown]
